FAERS Safety Report 8911574 (Version 1)
Quarter: 2012Q4

REPORT INFORMATION
  Report Type: 
  Country: US (occurrence: US)
  Receive Date: 20121115
  Receipt Date: 20121115
  Transmission Date: 20130627
  Serious: No
  Sender: FDA-Public Use
  Company Number: US-PFIZER INC-2012276784

PATIENT
  Sex: Female

DRUGS (2)
  1. GLIPIZIDE [Suspect]
     Indication: DIABETES
     Dosage: 20 mg, 1x/day
     Route: 048
  2. ACTOS [Concomitant]

REACTIONS (1)
  - Blood glucose abnormal [Unknown]
